FAERS Safety Report 8532688-8 (Version None)
Quarter: 2012Q3

REPORT INFORMATION
  Report Type: 
  Country: None (occurrence: None)
  Receive Date: 20120724
  Receipt Date: 20120718
  Transmission Date: 20120928
  Serious: Yes (Death, Hospitalization)
  Sender: FDA-Public Use
  Company Number: PHHO2010DE02165

PATIENT
  Sex: Male
  Weight: 173 kg

DRUGS (29)
  1. CLARITHROMYCIN [Concomitant]
  2. TAMSULOSIN HCL [Concomitant]
     Indication: BENIGN PROSTATIC HYPERPLASIA
  3. LEVOTHYROXINE SODIUM [Concomitant]
  4. ROCEPHIN [Concomitant]
  5. GLEEVEC [Suspect]
     Indication: PULMONARY HYPERTENSION
     Dosage: 100 MG
     Route: 048
     Dates: start: 20070105
  6. ALDACTONE [Concomitant]
     Indication: PULMONARY HYPERTENSION
  7. NOVALGIN [Concomitant]
     Indication: GOUT
  8. PANTOPRAZOLE [Concomitant]
  9. REVATIO [Concomitant]
  10. MAGNESIUM SULFATE [Concomitant]
  11. NOVO-DIPIRADOL [Concomitant]
  12. CLINDAMYCIN HCL [Concomitant]
  13. LASIX [Concomitant]
     Indication: OEDEMA
  14. OXYGEN [Concomitant]
     Indication: PULMONARY HYPERTENSION
  15. DIGOXIN [Concomitant]
  16. CIPROFLOXACIN [Concomitant]
  17. LEVOFLOXACIN [Concomitant]
  18. PLACEBO [Suspect]
     Indication: PULMONARY HYPERTENSION
     Dosage: PLACEBO
     Route: 048
     Dates: start: 20060711, end: 20070104
  19. ACETYLCYSTEINE [Concomitant]
  20. TORSEMIDE [Concomitant]
     Indication: PULMONARY HYPERTENSION
  21. BOSENTAN [Concomitant]
     Indication: PULMONARY HYPERTENSION
  22. MARCUMAR [Concomitant]
     Indication: PULMONARY HYPERTENSION
  23. PREDNISONE TAB [Concomitant]
  24. IRBESARTAN [Concomitant]
     Indication: HYPERTENSION
  25. CELESTAMINE TAB [Concomitant]
     Indication: GOUT
  26. OXAZEPAM [Concomitant]
     Indication: SLEEP DISORDER
  27. PRAVASTATIN [Concomitant]
     Indication: HYPERCHOLESTEROLAEMIA
  28. XIPAMIDE [Concomitant]
  29. ENOXAPARIN SODIUM [Concomitant]

REACTIONS (17)
  - RIB FRACTURE [None]
  - OXYGEN SATURATION DECREASED [None]
  - HYPOTENSION [None]
  - RESPIRATORY TRACT INFLAMMATION [None]
  - GENERAL PHYSICAL HEALTH DETERIORATION [None]
  - BLOOD CREATININE INCREASED [None]
  - PAIN [None]
  - DYSPNOEA [None]
  - DEHYDRATION [None]
  - SYNCOPE [None]
  - CARDIAC FAILURE [None]
  - ASTHENIA [None]
  - LUNG INFILTRATION [None]
  - CONSTIPATION [None]
  - DISEASE PROGRESSION [None]
  - C-REACTIVE PROTEIN INCREASED [None]
  - NAUSEA [None]
